FAERS Safety Report 8299920-X (Version None)
Quarter: 2012Q2

REPORT INFORMATION
  Report Type: 
  Country: None (occurrence: None)
  Receive Date: 20120420
  Receipt Date: 20120411
  Transmission Date: 20120825
  Serious: Yes (Hospitalization)
  Sender: FDA-Public Use
  Company Number: CN-BRISTOL-MYERS SQUIBB COMPANY-16469652

PATIENT
  Age: 35 Year
  Sex: Male

DRUGS (2)
  1. GLUCOPHAGE [Suspect]
     Dosage: SPLITTING 1 TAB INTO 3 PIECES AND TAKE 3 TIMES IN A DAY
     Route: 048
     Dates: start: 20120101, end: 20120312
  2. ACARBOSE [Suspect]
     Dosage: TAB
     Dates: start: 20120101, end: 20120312

REACTIONS (4)
  - ALANINE AMINOTRANSFERASE INCREASED [None]
  - NAUSEA [None]
  - HEADACHE [None]
  - PRURITUS [None]
